FAERS Safety Report 25849544 (Version 1)
Quarter: 2025Q3

REPORT INFORMATION
  Report Type: Spontaneous
  Country: BR (occurrence: BR)
  Receive Date: 20250926
  Receipt Date: 20250926
  Transmission Date: 20251021
  Serious: Yes (Death, Other)
  Sender: JOHNSON AND JOHNSON
  Company Number: BR-JNJFOC-20250923729

PATIENT
  Sex: Female

DRUGS (1)
  1. TALVEY [Suspect]
     Active Substance: TALQUETAMAB-TGVS
     Indication: Product used for unknown indication
     Route: 065

REACTIONS (2)
  - Bradypnoea [Fatal]
  - Immune effector cell-associated neurotoxicity syndrome [Unknown]
